FAERS Safety Report 10405263 (Version 1)
Quarter: 2014Q3

REPORT INFORMATION
  Report Type: Spontaneous
  Country: US (occurrence: US)
  Receive Date: 20140825
  Receipt Date: 20140825
  Transmission Date: 20150326
  Serious: Yes (Other)
  Sender: FDA-Public Use
  Company Number: US-AMGEN-USASP2014063532

PATIENT
  Sex: Male

DRUGS (7)
  1. CALCIUM [Concomitant]
     Active Substance: CALCIUM
     Dosage: 1000 MG, UNK
  2. PRAVASTATIN [Concomitant]
     Active Substance: PRAVASTATIN\PRAVASTATIN SODIUM
     Indication: BLOOD CHOLESTEROL ABNORMAL
     Dosage: 20 MG, QHS
  3. FORADIL [Concomitant]
     Active Substance: FORMOTEROL FUMARATE
     Route: 055
  4. VITAMIN D                          /00107901/ [Concomitant]
     Active Substance: ERGOCALCIFEROL
  5. PLAVIX [Concomitant]
     Active Substance: CLOPIDOGREL BISULFATE
     Indication: MYOCARDIAL INFARCTION
     Dosage: 75 MG, UNK
  6. PROLIA [Suspect]
     Active Substance: DENOSUMAB
     Indication: PRODUCT USED FOR UNKNOWN INDICATION
     Dosage: UNK
     Route: 065
     Dates: start: 20131122
  7. ALTACE [Concomitant]
     Active Substance: RAMIPRIL
     Dosage: 2.5 MG, QHS

REACTIONS (7)
  - Apathy [Unknown]
  - Gingival recession [Unknown]
  - Lethargy [Unknown]
  - Tooth infection [Unknown]
  - Nausea [Unknown]
  - Malaise [Unknown]
  - Tooth deposit [Unknown]

NARRATIVE: CASE EVENT DATE: 201402
